FAERS Safety Report 9080550 (Version 1)
Quarter: 2013Q1

REPORT INFORMATION
  Report Type: Report from Study
  Country: US (occurrence: US)
  Receive Date: 20130130
  Receipt Date: 20130130
  Transmission Date: 20140127
  Serious: No
  Sender: FDA-Public Use
  Company Number: US-ABBOTT-12P-163-0966404-00

PATIENT
  Age: 33 Year
  Sex: Male

DRUGS (5)
  1. HUMIRA 40 MG/0.8 ML PEN [Suspect]
     Indication: CROHN^S DISEASE
     Dosage: 4 PENS
     Dates: start: 20120709, end: 20120709
  2. HUMIRA 40 MG/0.8 ML PEN [Suspect]
     Dosage: 2 PENS
     Dates: start: 20120723, end: 20120723
  3. HUMIRA 40 MG/0.8 ML PEN [Suspect]
     Dosage: 2 PENS
     Dates: start: 20120806
  4. ASACOL [Concomitant]
     Indication: PRODUCT USED FOR UNKNOWN INDICATION
  5. IMURAN [Concomitant]
     Indication: PRODUCT USED FOR UNKNOWN INDICATION

REACTIONS (1)
  - Incorrect dose administered [Unknown]
